FAERS Safety Report 5207842-3 (Version None)
Quarter: 2007Q1

REPORT INFORMATION
  Report Type: 
  Country: None (occurrence: None)
  Receive Date: 20070112
  Receipt Date: 20070105
  Transmission Date: 20070707
  Serious: Yes (Other)
  Sender: FDA-Public Use
  Company Number: GB-PFIZER INC-2007001891

PATIENT
  Age: 80 Year
  Sex: Female
  Weight: 79 kg

DRUGS (6)
  1. ATORVASTATIN CALCIUM [Suspect]
     Indication: BLOOD CHOLESTEROL INCREASED
     Route: 048
     Dates: start: 20061009, end: 20061012
  2. ASPIRIN [Concomitant]
  3. ATENOLOL [Concomitant]
  4. DILTIAZEM HCL [Concomitant]
  5. GLYCERYL TRINITRATE [Concomitant]
  6. OMEPRAZOLE [Concomitant]

REACTIONS (3)
  - ALOPECIA [None]
  - HEADACHE [None]
  - MUSCLE SPASMS [None]
